FAERS Safety Report 8184238-6 (Version None)
Quarter: 2012Q1

REPORT INFORMATION
  Report Type: 
  Country: None (occurrence: None)
  Receive Date: 20120207
  Receipt Date: 20110207
  Transmission Date: 20120608
  Serious: Yes (Hospitalization, Other)
  Sender: FDA-Public Use
  Company Number: 2010021965

PATIENT
  Sex: Female
  Weight: 61.9 kg

DRUGS (3)
  1. VIVAGLOBIN [Suspect]
     Indication: IMMUNODEFICIENCY COMMON VARIABLE
     Dosage: SEE IMAGE
     Route: 058
     Dates: start: 20070201
  2. VIVAGLOBIN [Suspect]
     Indication: IMMUNODEFICIENCY COMMON VARIABLE
     Dosage: SEE IMAGE
     Route: 058
     Dates: start: 20070201
  3. VIVAGLOBIN [Suspect]
     Indication: IMMUNODEFICIENCY COMMON VARIABLE
     Dosage: SEE IMAGE
     Route: 058
     Dates: start: 20070201

REACTIONS (7)
  - NAUSEA [None]
  - BACK PAIN [None]
  - INFUSION SITE SWELLING [None]
  - PHOTOPHOBIA [None]
  - INFUSION SITE URTICARIA [None]
  - MENINGITIS ASEPTIC [None]
  - HEADACHE [None]
